FAERS Safety Report 4901947-X (Version None)
Quarter: 2006Q1

REPORT INFORMATION
  Report Type: 
  Country: None (occurrence: None)
  Receive Date: 20060206
  Receipt Date: 20051206
  Transmission Date: 20060701
  Serious: Yes (Life-Threatening, Other)
  Sender: FDA-Public Use
  Company Number: US-AMGEN-US160324

PATIENT
  Sex: Male
  Weight: 112 kg

DRUGS (8)
  1. ARANESP [Suspect]
     Indication: ANAEMIA
     Route: 058
     Dates: start: 20050912, end: 20051209
  2. DAPSONE [Suspect]
     Dates: end: 20051201
  3. PROTONIX [Concomitant]
  4. ACYCLOVIR [Concomitant]
  5. FOLIC ACID [Concomitant]
  6. VITAMIN B-12 [Concomitant]
  7. VITAMIN B6 [Concomitant]
  8. TYLENOL [Concomitant]

REACTIONS (6)
  - ANAEMIA [None]
  - APLASIA PURE RED CELL [None]
  - EPSTEIN-BARR VIRUS TEST POSITIVE [None]
  - LEUKOPENIA [None]
  - MARROW HYPERPLASIA [None]
  - THROMBOCYTOPENIA [None]
